FAERS Safety Report 5435849-X (Version None)
Quarter: 2007Q3

REPORT INFORMATION
  Report Type: 
  Country: None (occurrence: None)
  Receive Date: 20070831
  Receipt Date: 20070726
  Transmission Date: 20080115
  Serious: No
  Sender: FDA-Public Use
  Company Number: A0666180A

PATIENT
  Age: 32 Year
  Sex: Female

DRUGS (3)
  1. ALLI [Suspect]
  2. UNKNOWN MEDICATION [Concomitant]
  3. LA WEIGHT LOSS CLINIC FATTY ACID SUPPLEMENT [Concomitant]

REACTIONS (3)
  - DRUG INTERACTION [None]
  - FLATULENCE [None]
  - INTESTINAL FUNCTIONAL DISORDER [None]
